FAERS Safety Report 18437028 (Version 1)
Quarter: 2020Q4

REPORT INFORMATION
  Report Type: Spontaneous
  Country: US (occurrence: US)
  Receive Date: 20201028
  Receipt Date: 20201028
  Transmission Date: 20210114
  Serious: Yes (Other)
  Sender: FDA-Public Use
  Company Number: US-IMMUNOMEDICS, INC.-2020IMMU000592

PATIENT
  Sex: Female

DRUGS (2)
  1. TRODELVY [Suspect]
     Active Substance: SACITUZUMAB GOVITECAN-HZIY
     Dosage: UNK, DAY 1 AND 8 OF 21 DAY CYCLE
     Route: 042
     Dates: start: 20201001, end: 20201001
  2. TRODELVY [Suspect]
     Active Substance: SACITUZUMAB GOVITECAN-HZIY
     Indication: BREAST CANCER
     Dosage: UNK, DAY 1 AND 8 OF 21 DAY CYCLE
     Route: 042
     Dates: start: 20200925, end: 20200925

REACTIONS (3)
  - Product administration interrupted [Recovered/Resolved]
  - Hypoxia [Not Recovered/Not Resolved]
  - Dyspnoea [Not Recovered/Not Resolved]
